FAERS Safety Report 7034005-1 (Version None)
Quarter: 2010Q4

REPORT INFORMATION
  Report Type: 
  Country: None (occurrence: None)
  Receive Date: 20101006
  Receipt Date: 20100928
  Transmission Date: 20110411
  Serious: Yes (Hospitalization, Other)
  Sender: FDA-Public Use
  Company Number: 2010MA003129

PATIENT
  Age: 48 Year
  Sex: Female

DRUGS (17)
  1. HYDROCORTISONE 2.5% CREAM [Suspect]
     Indication: CROHN'S DISEASE
     Dosage: 100 MG;QID;IV
     Route: 042
     Dates: start: 20100911, end: 20100916
  2. AMPICILLIN SODIUM/SULBACTAM SODIUM [Concomitant]
  3. OMEPRAZOLE [Concomitant]
  4. CEFUROXIME [Concomitant]
  5. METRONIDAZOLE [Concomitant]
  6. PARACETAMOL [Concomitant]
  7. CYCLIZINE [Concomitant]
  8. TRAMADOL HCL [Concomitant]
  9. MORPHINE [Concomitant]
  10. TRIMETHOPRIM [Concomitant]
  11. ENOXAPARIN SODIUM [Concomitant]
  12. LOPERAMIDE [Concomitant]
  13. PROCHLORPERAZINE MALEATE [Concomitant]
  14. DIORALYTE [Concomitant]
  15. GAVISCON [Concomitant]
  16. MESALAZINE [Concomitant]
  17. FLUCLOXACILLIN [Concomitant]

REACTIONS (1)
  - GASTRIC ULCER [None]
